FAERS Safety Report 24210663 (Version 1)
Quarter: 2024Q3

REPORT INFORMATION
  Report Type: Spontaneous
  Country: ES (occurrence: ES)
  Receive Date: 20240814
  Receipt Date: 20240814
  Transmission Date: 20241017
  Serious: Yes (Other)
  Sender: FRESENIUS KABI
  Company Number: None

PATIENT
  Sex: Male

DRUGS (1)
  1. LIDOCAINE [Suspect]
     Active Substance: LIDOCAINE
     Indication: Product used for unknown indication
     Route: 042
     Dates: start: 202406, end: 202406

REACTIONS (2)
  - Seizure [Recovered/Resolved]
  - Product strength confusion [Recovered/Resolved]

NARRATIVE: CASE EVENT DATE: 20240601
